FAERS Safety Report 13469692 (Version 1)
Quarter: 2017Q2

REPORT INFORMATION
  Report Type: Report from Study
  Country: VN (occurrence: VN)
  Receive Date: 20170422
  Receipt Date: 20170422
  Transmission Date: 20170830
  Serious: Yes (Other)
  Sender: FDA-Public Use
  Company Number: VN-ROCHE-1921673

PATIENT

DRUGS (5)
  1. RITUXIMAB [Suspect]
     Active Substance: RITUXIMAB
     Indication: B-CELL LYMPHOMA
     Dosage: 21 DAY CYCLE, DAY 1
     Route: 041
  2. PREDNISOLON [Suspect]
     Active Substance: PREDNISOLONE
     Indication: B-CELL LYMPHOMA
     Dosage: DAY 1-DAY 5 OF 21-DAY CYCLE
     Route: 048
  3. CYCLOPHOSPHAMIDE. [Suspect]
     Active Substance: CYCLOPHOSPHAMIDE
     Indication: B-CELL LYMPHOMA
     Dosage: 21 DAY CYCLE, DAY 1
     Route: 041
  4. VINCRISTIN [Suspect]
     Active Substance: VINCRISTINE
     Indication: B-CELL LYMPHOMA
     Dosage: 21 DAY CYCLE, DAY 1
     Route: 041
  5. DOXORUBICIN [Suspect]
     Active Substance: DOXORUBICIN
     Indication: B-CELL LYMPHOMA
     Dosage: 21 DAY CYCLE, DAY 1
     Route: 041

REACTIONS (5)
  - Haematotoxicity [Unknown]
  - Nephropathy toxic [Unknown]
  - Platelet toxicity [Unknown]
  - Hepatotoxicity [Unknown]
  - White blood cell count decreased [Unknown]
